FAERS Safety Report 14297006 (Version 2)
Quarter: 2018Q1

REPORT INFORMATION
  Report Type: Spontaneous
  Country: DE (occurrence: DE)
  Receive Date: 20171218
  Receipt Date: 20180109
  Transmission Date: 20180509
  Serious: Yes (Other)
  Sender: FDA-Public Use
  Company Number: DE-GLAXOSMITHKLINE-DE2017GSK192750

PATIENT
  Age: 7 Year
  Sex: Male
  Weight: 35 kg

DRUGS (29)
  1. VIGANTOLETTEN [Concomitant]
     Active Substance: CHOLECALCIFEROL
     Dosage: 1000 IE VITAMIN D3
     Dates: start: 20160922
  2. NASIC [Concomitant]
     Active Substance: DEXPANTHENOL\XYLOMETAZOLINE HYDROCHLORIDE
     Dosage: UNK, NASIC OK NASENSPRAY
     Dates: start: 20170410
  3. FLORADIX MIT EISEN [Concomitant]
     Dosage: UNK
     Dates: start: 20160922
  4. BASODEXAN SOFTCREME [Concomitant]
     Dosage: UNK
     Dates: start: 20170410
  5. RHINOMER MEDIUM [Concomitant]
     Dosage: UNK
     Dates: start: 20170410
  6. ANGOCIN ANTI-INFEKT N [Concomitant]
     Dosage: UNK
     Dates: start: 20170509
  7. MUCOSOLVAN SAFT [Concomitant]
     Dosage: UNK
     Dates: start: 20171010
  8. SALBUTAMOL-CT DOSIERAEROSOL [Concomitant]
     Indication: SUBGLOTTIC LARYNGITIS
     Dosage: UNK
     Dates: start: 20160621
  9. BOOSTRIX [Concomitant]
     Active Substance: TETANUS TOXOID, REDUCED DIPHTHERIA TOXOID AND ACELLULAR PERTUSSIS VACCINE, ADSORBED ANTIGENS
     Indication: PROPHYLAXIS
     Dates: start: 20160922, end: 20160922
  10. FERROSANOL [Concomitant]
     Active Substance: FERROUS GLUCONATE
     Dosage: UNK
     Dates: start: 20160928
  11. IMUPRET N [Concomitant]
     Dosage: IMUPRET N DRAGEES
     Dates: start: 20170509
  12. XANAFLU [Concomitant]
     Active Substance: INFLUENZA VIRUS VACCINE
     Dosage: 2016/2017 FERTIGSPRITZE OHNE KAN?LE
     Dates: start: 20171205
  13. KOHLE COMPRETTEN [Concomitant]
     Dosage: UNK
     Dates: start: 20160922
  14. PROSPAN HUSTENSAFT [Concomitant]
     Dosage: UNK
     Dates: start: 20160922
  15. VOMEX A SYRUP [Concomitant]
     Dosage: UNK
     Dates: start: 20160922
  16. MUCOSOLVAN KINDERSAFT [Concomitant]
     Dosage: UNK
     Dates: start: 20171205
  17. SYMBIOFLOR [Concomitant]
     Dosage: UNK
     Dates: start: 20160922
  18. TANNOLACT [Concomitant]
     Dosage: UNK,  FETTCREME
     Dates: start: 20170410
  19. ENCEPUR CHILDREN [Concomitant]
     Indication: PROPHYLAXIS
     Dates: start: 20171005, end: 20171005
  20. PARACETAMOL RATIOPHARM [Concomitant]
     Active Substance: ACETAMINOPHEN
     Dosage: 500 MG, UNK
     Dates: start: 20171205
  21. BETAISODONA SALBE [Concomitant]
     Dosage: UNK
     Dates: start: 20160922
  22. NASIC CUR [Concomitant]
     Dosage: UNK
     Dates: start: 20170410
  23. VOMEX A [Concomitant]
     Active Substance: DIMENHYDRINATE
     Dosage: VOMEX A DRAGEES
     Dates: start: 20170509
  24. VIANI MITE [Suspect]
     Active Substance: FLUTICASONE PROPIONATE\SALMETEROL XINAFOATE
     Indication: ASTHMA
     Dosage: 25?G / 50?G 2 X 2 HUB PER USE; 2-0-2
     Dates: start: 20160810
  25. FLUTIDE MITE [Concomitant]
     Active Substance: FLUTICASONE PROPIONATE
     Dosage: 50 ?G, BID
     Dates: start: 201601, end: 201608
  26. BRONCHICUM SAFT [Concomitant]
     Dosage: UNK
     Dates: start: 20170410
  27. BRONCHIPRET THYMIAN PASTILLEN [Concomitant]
     Dosage: UNK
     Dates: start: 20170410
  28. ZINKOROT [Concomitant]
     Active Substance: ZINC OROTATE
     Dosage: 25 MG, UNK
     Dates: start: 20170410
  29. DEKRISTOLVIT D3 [Concomitant]
     Dosage: D3 5600 I.E.
     Dates: start: 20171205

REACTIONS (9)
  - Upper-airway cough syndrome [Unknown]
  - Granulocytopenia [Unknown]
  - Rales [Recovered/Resolved]
  - Respiratory tract infection [Recovered/Resolved]
  - Sinusitis [Unknown]
  - Purulent discharge [Recovered/Resolved]
  - Neutropenia [Unknown]
  - Cough [Recovered/Resolved]
  - Breath sounds abnormal [Recovered/Resolved]

NARRATIVE: CASE EVENT DATE: 2016
